FAERS Safety Report 14280133 (Version 2)
Quarter: 2018Q2

REPORT INFORMATION
  Report Type: Spontaneous
  Country: US (occurrence: US)
  Receive Date: 20171213
  Receipt Date: 20180612
  Transmission Date: 20180711
  Serious: Yes (Life-Threatening, Hospitalization, Other)
  Sender: FDA-Public Use
  Company Number: US-ACCORD-061832

PATIENT
  Age: 4 Decade
  Sex: Female

DRUGS (5)
  1. LAMOTRIGINE. [Concomitant]
     Active Substance: LAMOTRIGINE
  2. CLONAZEPAM. [Concomitant]
     Active Substance: CLONAZEPAM
  3. QUETIAPINE. [Suspect]
     Active Substance: QUETIAPINE
     Indication: BIPOLAR II DISORDER
     Dosage: FOR AT LEAST 1 YEAR AND TITRATING THE DOSE FOR THE PAST 2 MONTHS
  4. VENLAFAXINE/VENLAFAXINE HYDROCHLORIDE [Interacting]
     Active Substance: VENLAFAXINE HYDROCHLORIDE
     Indication: BIPOLAR II DISORDER
  5. LEVOTHYROXINE. [Concomitant]
     Active Substance: LEVOTHYROXINE

REACTIONS (8)
  - Ventricular fibrillation [Unknown]
  - Drug interaction [Unknown]
  - Unresponsive to stimuli [None]
  - Torsade de pointes [Unknown]
  - Coma [None]
  - Cardiac arrest [Unknown]
  - Electrocardiogram QT prolonged [Recovering/Resolving]
  - Drug dose omission [None]
